FAERS Safety Report 19040969 (Version 1)
Quarter: 2021Q1

REPORT INFORMATION
  Report Type: Report from Study
  Country: IR (occurrence: IR)
  Receive Date: 20210323
  Receipt Date: 20210323
  Transmission Date: 20210420
  Serious: Yes (Other)
  Sender: FDA-Public Use
  Company Number: IR-SUN PHARMACEUTICAL INDUSTRIES LTD-2021R1-286825

PATIENT
  Age: 10 Year
  Sex: Male

DRUGS (4)
  1. METHOTREXATE. [Suspect]
     Active Substance: METHOTREXATE
     Indication: PEMPHIGOID
     Dosage: UNK
     Route: 065
  2. DAPSONE. [Suspect]
     Active Substance: DAPSONE
     Indication: PEMPHIGOID
     Dosage: UNK
     Route: 065
  3. IVIG [Suspect]
     Active Substance: HUMAN IMMUNOGLOBULIN G
     Indication: PEMPHIGOID
     Dosage: UNK
     Route: 065
  4. PREDNISOLONE. [Suspect]
     Active Substance: PREDNISOLONE
     Indication: PEMPHIGOID
     Dosage: UNK
     Route: 065

REACTIONS (2)
  - Liver function test increased [Unknown]
  - Drug resistance [Unknown]
